FAERS Safety Report 9168402 (Version 1)
Quarter: 2013Q1

REPORT INFORMATION
  Report Type: Spontaneous
  Country: CA (occurrence: CA)
  Receive Date: 20130318
  Receipt Date: 20130318
  Transmission Date: 20140127
  Serious: Yes (Hospitalization)
  Sender: FDA-Public Use
  Company Number: CA-AMGEN-CANSP2013016378

PATIENT
  Age: 72 Year
  Sex: Female
  Weight: 61.36 kg

DRUGS (2)
  1. PROLIA [Suspect]
     Indication: OSTEOPOROSIS
     Dosage: 60 MG, UNK
     Dates: start: 20121005
  2. PREDNISONE [Concomitant]

REACTIONS (4)
  - Brain neoplasm [Unknown]
  - Epilepsy [Unknown]
  - Hypophagia [Unknown]
  - Blood glucose increased [Not Recovered/Not Resolved]
